FAERS Safety Report 10084358 (Version 2)
Quarter: 2014Q2

REPORT INFORMATION
  Report Type: Spontaneous
  Country: US (occurrence: US)
  Receive Date: 20140417
  Receipt Date: 20140428
  Transmission Date: 20141212
  Serious: Yes (Hospitalization)
  Sender: FDA-Public Use
  Company Number: US-BAXTER-2014BAX018598

PATIENT
  Sex: Female

DRUGS (1)
  1. DIANEAL LOW CALCIUM [Suspect]
     Indication: RENAL FAILURE CHRONIC
     Route: 033

REACTIONS (4)
  - Hepatic cirrhosis [Recovering/Resolving]
  - Anaemia [Recovering/Resolving]
  - Encephalopathy [Recovering/Resolving]
  - Gastrointestinal haemorrhage [Recovering/Resolving]
